FAERS Safety Report 6815627-7 (Version None)
Quarter: 2010Q3

REPORT INFORMATION
  Report Type: 
  Country: None (occurrence: None)
  Receive Date: 20100702
  Receipt Date: 20100624
  Transmission Date: 20110219
  Serious: Yes (Hospitalization)
  Sender: FDA-Public Use
  Company Number: BR-MEDIMMUNE-MEDI-0011204

PATIENT
  Sex: Male
  Weight: 6.4 kg

DRUGS (1)
  1. SYNAGIS [Suspect]
     Indication: CARDIAC DISORDER
     Route: 030
     Dates: start: 20100420, end: 20100501

REACTIONS (3)
  - BRONCHIOLITIS [None]
  - FATIGUE [None]
  - NASOPHARYNGITIS [None]
